FAERS Safety Report 8859673 (Version 1)
Quarter: 2012Q4

REPORT INFORMATION
  Report Type: 
  Country: US (occurrence: US)
  Receive Date: 20121025
  Receipt Date: 20121025
  Transmission Date: 20130627
  Serious: No
  Sender: FDA-Public Use
  Company Number: US-ABBOTT-12P-163-0892716-00

PATIENT
  Sex: Female
  Weight: 72.64 kg

DRUGS (8)
  1. LUPRON DEPOT 3.75 MG [Suspect]
     Indication: ENDOMETRIOSIS
     Dates: start: 201105
  2. NORTHINDRONE ACETATE [Concomitant]
     Indication: PRODUCT USED FOR UNKNOWN INDICATION
     Dates: start: 201105
  3. CYMBALTA [Concomitant]
     Indication: DEPRESSION
  4. RELAFEN [Concomitant]
     Indication: ARTHRITIS
  5. LORTAB [Concomitant]
     Indication: PAIN
  6. ADVAIR [Concomitant]
     Indication: ASTHMA
  7. AVENTYL [Concomitant]
     Indication: CYSTITIS INTERSTITIAL
  8. TOPAMAX [Concomitant]
     Indication: MIGRAINE PROPHYLAXIS

REACTIONS (4)
  - Dyspnoea [Recovering/Resolving]
  - Palpitations [Not Recovered/Not Resolved]
  - Hypoaesthesia [Not Recovered/Not Resolved]
  - Headache [Not Recovered/Not Resolved]
